FAERS Safety Report 18179009 (Version 1)
Quarter: 2020Q3

REPORT INFORMATION
  Report Type: Report from Study
  Country: KE (occurrence: KE)
  Receive Date: 20200820
  Receipt Date: 20200820
  Transmission Date: 20201103
  Serious: Yes (Other)
  Sender: FDA-Public Use
  Company Number: KE-SEATTLE GENETICS-2019SGN02166

PATIENT
  Sex: Male

DRUGS (1)
  1. BRENTUXIMAB VEDOTIN [Suspect]
     Active Substance: BRENTUXIMAB VEDOTIN
     Indication: HODGKIN^S DISEASE
     Dosage: 126 MILLIGRAM
     Route: 042
     Dates: start: 20190329

REACTIONS (3)
  - Thrombosis [Unknown]
  - Hodgkin^s disease recurrent [Unknown]
  - Insomnia [Unknown]
